FAERS Safety Report 4284441-1 (Version None)
Quarter: 2004Q1

REPORT INFORMATION
  Report Type: 
  Country: None (occurrence: None)
  Receive Date: 20040130
  Receipt Date: 20040120
  Transmission Date: 20041129
  Serious: Yes (Death)
  Sender: FDA-Public Use
  Company Number: 2004194839JP

PATIENT

DRUGS (2)
  1. CAMPTOSAR [Suspect]
     Indication: LUNG NEOPLASM MALIGNANT
     Dosage: 60 MG/M2, CYCLIC, DAY 1 AND 9, IV DRIP
     Route: 041
  2. CISPLATIN [Concomitant]

REACTIONS (3)
  - BONE MARROW DEPRESSION [None]
  - DRUG INEFFECTIVE [None]
  - ENTEROCOLITIS INFECTIOUS [None]
